FAERS Safety Report 9320834 (Version 3)
Quarter: 2013Q3

REPORT INFORMATION
  Report Type: Report from Study
  Country: PL (occurrence: PL)
  Receive Date: 20130531
  Receipt Date: 20130926
  Transmission Date: 20140515
  Serious: Yes (Hospitalization)
  Sender: FDA-Public Use
  Company Number: PL-BIOGENIDEC-2013BI046829

PATIENT
  Age: 57 Year
  Sex: Female
  Weight: 62 kg

DRUGS (8)
  1. BG00012 [Suspect]
     Indication: MULTIPLE SCLEROSIS
     Route: 048
     Dates: start: 20101110
  2. TRITACE [Concomitant]
  3. CLEXANE [Concomitant]
  4. POLPRIL [Concomitant]
  5. TERTENSIF [Concomitant]
  6. METOCARD [Concomitant]
  7. KALIPOZ [Concomitant]
  8. NOLPAZA [Concomitant]

REACTIONS (1)
  - Thrombosis [Recovered/Resolved]
